FAERS Safety Report 4984794-2 (Version None)
Quarter: 2006Q2

REPORT INFORMATION
  Report Type: 
  Country: None (occurrence: None)
  Receive Date: 20060427
  Receipt Date: 20051220
  Transmission Date: 20061013
  Serious: Yes (Hospitalization)
  Sender: FDA-Public Use
  Company Number: US-MERCK-0512USA03284

PATIENT
  Age: 63 Year
  Sex: Female
  Weight: 76 kg

DRUGS (3)
  1. VIOXX [Suspect]
     Indication: ARTHRITIS
     Route: 048
     Dates: start: 20000301, end: 20010101
  2. PREDNISONE [Concomitant]
     Route: 065
  3. PLAQUENIL [Concomitant]
     Route: 065

REACTIONS (12)
  - ADVERSE EVENT [None]
  - CARDIOVASCULAR DISORDER [None]
  - CEREBROVASCULAR ACCIDENT [None]
  - GASTROOESOPHAGEAL REFLUX DISEASE [None]
  - HERNIA [None]
  - HYPERTENSION [None]
  - INJURY [None]
  - LIMB INJURY [None]
  - OVARIAN CANCER [None]
  - PNEUMONIA [None]
  - RENAL DISORDER [None]
  - SYSTEMIC LUPUS ERYTHEMATOSUS [None]
